FAERS Safety Report 12517643 (Version 2)
Quarter: 2016Q4

REPORT INFORMATION
  Report Type: Report from Study
  Country: FR (occurrence: FR)
  Receive Date: 20160630
  Receipt Date: 20161129
  Transmission Date: 20170207
  Serious: Yes (Death, Life-Threatening, Hospitalization, Other)
  Sender: FDA-Public Use
  Company Number: PHHY2014FR110662

PATIENT
  Sex: Male

DRUGS (1)
  1. AFINITOR [Suspect]
     Active Substance: EVEROLIMUS
     Indication: METASTATIC RENAL CELL CARCINOMA
     Dosage: 10 MG, QD
     Route: 048
     Dates: start: 20140417, end: 20140804

REACTIONS (12)
  - Anaemia [Fatal]
  - Hypertriglyceridaemia [Recovered/Resolved]
  - Anaemia [Recovered/Resolved]
  - Fatigue [Unknown]
  - Anaemia [Recovered/Resolved]
  - Dyspnoea [Fatal]
  - Interstitial lung disease [Fatal]
  - Chest pain [Fatal]
  - Malignant neoplasm progression [Fatal]
  - Anaemia [Recovered/Resolved]
  - Mucosal inflammation [Recovered/Resolved]
  - Anaemia [Recovered/Resolved]

NARRATIVE: CASE EVENT DATE: 201404
